FAERS Safety Report 8694468 (Version 3)
Quarter: 2013Q1

REPORT INFORMATION
  Report Type: Report from Study
  Country: PL (occurrence: PL)
  Receive Date: 20120731
  Receipt Date: 20130109
  Transmission Date: 20140127
  Serious: Yes (Death, Hospitalization)
  Sender: FDA-Public Use
  Company Number: PL-CELGENEUS-129-CCAZA-12063907

PATIENT
  Age: 69 Year
  Sex: Male
  Weight: 75 kg

DRUGS (29)
  1. AZACITIDINE INJECTABLE [Suspect]
     Indication: ACUTE MYELOID LEUKAEMIA
     Route: 065
     Dates: start: 20120202, end: 20120208
  2. AZACITIDINE INJECTABLE [Suspect]
     Route: 065
     Dates: start: 20120611, end: 20120617
  3. PLATELETS [Concomitant]
     Indication: ACUTE MYELOID LEUKAEMIA
     Route: 065
  4. RED BLOOD CELLS [Concomitant]
     Indication: ACUTE MYELOID LEUKAEMIA
     Route: 065
  5. DIAPREL MR [Concomitant]
     Indication: TYPE 2 DIABETES MELLITUS
     Dosage: 60 MILLIGRAM
     Route: 048
     Dates: start: 20120130
  6. FORMETIC [Concomitant]
     Indication: TYPE 2 DIABETES MELLITUS
     Dosage: 1500 MILLIGRAM
     Route: 048
     Dates: start: 20120130
  7. NUTRIDRINK [Concomitant]
     Indication: CACHEXIA
     Dosage: 180 MILLIGRAM/MILLILITERS
     Route: 048
     Dates: start: 20120310
  8. MEGASTEROL [Concomitant]
     Indication: CACHEXIA
     Dosage: 40 MILLIGRAM/MILLILITERS
     Route: 048
     Dates: start: 20120322
  9. FLUCONAZOLE [Concomitant]
     Indication: PNEUMONIA
     Dosage: 200 MILLIGRAM
     Route: 041
     Dates: start: 20120323
  10. FLUCONAZOLE [Concomitant]
     Indication: ORAL CANDIDIASIS
     Dosage: 200 MILLIGRAM
     Route: 048
     Dates: start: 20120618
  11. FLUCONAZOLE [Concomitant]
     Dosage: 200 MILLIGRAM
     Route: 048
     Dates: start: 20120625, end: 20120701
  12. CITALOPRAM [Concomitant]
     Indication: DEPRESSION
     Dosage: 20 MILLIGRAM/MILLILITERS
     Route: 048
     Dates: start: 20120413
  13. POLYELECTROLYTE SOLUTION [Concomitant]
     Indication: CACHEXIA
     Dosage: 500 MILLILITER
     Route: 041
     Dates: start: 20120529, end: 20120530
  14. POLYELECTROLYTE SOLUTION [Concomitant]
     Dosage: 500 MILLILITER
     Route: 041
     Dates: start: 20120626, end: 20120701
  15. POLYELECTROLYTE SOLUTION [Concomitant]
     Dosage: 1000 MILLILITER
     Route: 041
     Dates: start: 20120606, end: 20120617
  16. POLYELECTROLYTE SOLUTION [Concomitant]
     Dosage: 1000 MILLILITER
     Route: 041
     Dates: start: 20120625, end: 20120625
  17. ALBUMIN [Concomitant]
     Indication: CACHEXIA
     Dosage: 100 MILLIGRAM/MILLILITERS
     Route: 041
     Dates: start: 20120529, end: 20120530
  18. ALBUMIN [Concomitant]
     Dosage: 100 MILLIGRAM/MILLILITERS
     Route: 041
     Dates: start: 20120625, end: 20120627
  19. FUROSEMIDE [Concomitant]
     Indication: PROPHYLAXIS
     Dosage: 20 MILLIGRAM
     Route: 041
     Dates: start: 20120529, end: 20120530
  20. ONDANSETRON [Concomitant]
     Indication: PROPHYLAXIS OF NAUSEA AND VOMITING
     Dosage: 8 MILLIGRAM
     Route: 041
     Dates: start: 20120611, end: 20120617
  21. NATRIUM CHLORATUM [Concomitant]
     Indication: CACHEXIA
     Dosage: 1000 MILLIGRAM/MILLILITERS
     Route: 041
     Dates: start: 20120606, end: 20120617
  22. NATRIUM CHLORATUM [Concomitant]
     Indication: GENERAL PHYSICAL HEALTH DETERIORATION
     Dosage: 20 MILLIGRAM/MILLILITERS
     Route: 041
     Dates: start: 20120606, end: 20120617
  23. OMEPRAZOLE [Concomitant]
     Indication: ABDOMINAL PAIN UPPER
     Dosage: 20 MILLIGRAM/MILLILITERS
     Route: 048
     Dates: start: 20120609, end: 20120609
  24. DROTAVERINUM [Concomitant]
     Indication: ABDOMINAL PAIN UPPER
     Dosage: 240 MILLIGRAM/MILLILITERS
     Route: 048
     Dates: start: 20120609, end: 20120609
  25. POTASSIUM CHLORIDE [Concomitant]
     Indication: CACHEXIA
     Dosage: 80 OTHER
     Route: 041
     Dates: start: 20120611, end: 20120617
  26. POTASSIUM CHLORIDE [Concomitant]
     Dosage: 40 OTHER
     Route: 041
     Dates: start: 20120625, end: 20120701
  27. ETAMSYLATE [Concomitant]
     Indication: HAEMORRHAGE PROPHYLAXIS
     Dosage: 1500 MILLIGRAM
     Route: 048
     Dates: start: 20120618
  28. TRANEXAMIC ACID [Concomitant]
     Indication: HAEMORRHAGE PROPHYLAXIS
     Dosage: 1500 MILLIGRAM
     Route: 048
     Dates: start: 20120618
  29. MAGNESIUM SULFURICUM [Concomitant]
     Indication: CACHEXIA
     Dosage: 2 MILLIGRAM
     Route: 041
     Dates: start: 20120625, end: 20120626

REACTIONS (1)
  - Pneumonia [Fatal]
